FAERS Safety Report 5582146-8 (Version None)
Quarter: 2008Q1

REPORT INFORMATION
  Report Type: 
  Country: None (occurrence: None)
  Receive Date: 20080104
  Receipt Date: 20071225
  Transmission Date: 20080703
  Serious: Yes (Hospitalization)
  Sender: FDA-Public Use
  Company Number: JP-GENENTECH-253559

PATIENT
  Sex: Female
  Weight: 45.4 kg

DRUGS (3)
  1. BEVACIZUMAB [Suspect]
     Indication: BREAST CANCER METASTATIC
     Dosage: 489 MG, Q3W
     Route: 042
     Dates: start: 20071010
  2. PACLITAXEL [Suspect]
     Indication: BREAST CANCER METASTATIC
     Dosage: 45 MG, Q3W
     Route: 042
     Dates: start: 20071010
  3. HEMORRHOIDAL MEDICATION NOS [Concomitant]
     Indication: DRUG USE FOR UNKNOWN INDICATION

REACTIONS (1)
  - ENTEROCOLITIS [None]
